FAERS Safety Report 9252906 (Version 2)
Quarter: 2013Q2

REPORT INFORMATION
  Report Type: Spontaneous
  Country: US (occurrence: US)
  Receive Date: 20130424
  Receipt Date: 20130515
  Transmission Date: 20140414
  Serious: Yes (Other)
  Sender: FDA-Public Use
  Company Number: US-BAYER-2013-051013

PATIENT
  Age: 32 Year
  Sex: Female

DRUGS (1)
  1. MIRENA [Suspect]
     Indication: MENORRHAGIA
     Dosage: 20 MCG/24HR, CONT
     Route: 015
     Dates: start: 20130214, end: 20130328

REACTIONS (5)
  - Device dislocation [Recovered/Resolved]
  - Procedural pain [Recovered/Resolved]
  - Procedural pain [Recovered/Resolved]
  - Vaginal haemorrhage [None]
  - Muscle spasms [None]
